FAERS Safety Report 11658664 (Version 4)
Quarter: 2016Q1

REPORT INFORMATION
  Report Type: Report from Study
  Country: US (occurrence: US)
  Receive Date: 20151026
  Receipt Date: 20160217
  Transmission Date: 20160525
  Serious: No
  Sender: FDA-Public Use
  Company Number: PHEH2015US021418

PATIENT
  Sex: Male

DRUGS (1)
  1. COSENTYX [Suspect]
     Active Substance: SECUKINUMAB
     Indication: PSORIASIS
     Dosage: 300 MG, QW4
     Route: 065
     Dates: start: 20150401

REACTIONS (5)
  - Seasonal allergy [Unknown]
  - Influenza [Unknown]
  - Fatigue [Unknown]
  - Psoriasis [Unknown]
  - Rash [Unknown]
